FAERS Safety Report 4637555-8 (Version None)
Quarter: 2005Q2

REPORT INFORMATION
  Report Type: 
  Country: None (occurrence: None)
  Receive Date: 20050325
  Receipt Date: 20050217
  Transmission Date: 20051028
  Serious: No
  Sender: FDA-Public Use
  Company Number: USA040360565

PATIENT
  Age: 44 Year
  Sex: Female

DRUGS (5)
  1. FORTEO [Suspect]
     Indication: OSTEOPOROSIS
     Dates: start: 20031201, end: 20040301
  2. ORTHO-NOVIN [Concomitant]
  3. ACIPHEX [Concomitant]
  4. CALCIUM GLUCONATE [Concomitant]
  5. VITAMINS [Concomitant]

REACTIONS (5)
  - BONE PAIN [None]
  - DIZZINESS [None]
  - HEADACHE [None]
  - MUSCLE SPASMS [None]
  - PAIN IN EXTREMITY [None]
